FAERS Safety Report 19000439 (Version 1)
Quarter: 2021Q1

REPORT INFORMATION
  Report Type: Report from Study
  Country: US (occurrence: US)
  Receive Date: 20210311
  Receipt Date: 20210311
  Transmission Date: 20210420
  Serious: Yes (Hospitalization, Other)
  Sender: FDA-Public Use
  Company Number: US-BAUSCH-BL-2021-007958

PATIENT
  Age: 2 Year
  Sex: Male

DRUGS (1)
  1. XIFAXAN [Suspect]
     Active Substance: RIFAXIMIN
     Indication: CONGENITAL HEPATIC FIBROSIS
     Dosage: STOPPED 2 MONTHS AGO
     Route: 048
     Dates: start: 2020, end: 202101

REACTIONS (8)
  - Haemorrhage [Unknown]
  - Inability to afford medication [Unknown]
  - Haematochezia [Unknown]
  - Haematemesis [Unknown]
  - Therapy interrupted [Unknown]
  - Product administered to patient of inappropriate age [Unknown]
  - Ammonia increased [Not Recovered/Not Resolved]
  - Wrong technique in product usage process [Unknown]

NARRATIVE: CASE EVENT DATE: 202101
